FAERS Safety Report 8288153-9 (Version None)
Quarter: 2012Q2

REPORT INFORMATION
  Report Type: 
  Country: None (occurrence: None)
  Receive Date: 20120416
  Receipt Date: 20120413
  Transmission Date: 20120825
  Serious: No
  Sender: FDA-Public Use
  Company Number: US-B.I. PHARMACEUTICALS,INC./RIDGEFIELD-2012-BP-07043BP

PATIENT
  Sex: Female

DRUGS (10)
  1. PRADAXA [Suspect]
     Indication: ATRIAL FIBRILLATION
     Dosage: 300 MG
     Route: 048
     Dates: start: 20111212
  2. PEPCID [Concomitant]
     Indication: ABDOMINAL DISCOMFORT
     Dosage: 40 MG
     Route: 048
     Dates: start: 20020101
  3. XANAX [Concomitant]
     Indication: ANXIETY
     Dosage: 0.5 MG
     Route: 048
     Dates: start: 19980101
  4. TUMS WITH CALCIUM [Concomitant]
     Indication: SUPPLEMENTATION THERAPY
     Route: 048
     Dates: start: 20080101
  5. TENORMIN [Concomitant]
     Indication: HYPERTENSION
     Dosage: 50 MG
     Route: 048
     Dates: start: 20020101
  6. IMDUR SR [Concomitant]
     Indication: CARDIAC DISORDER
     Dosage: 30 MG
     Route: 048
     Dates: start: 20020101
  7. VITAMIN D [Concomitant]
     Indication: SUPPLEMENTATION THERAPY
     Dosage: 2000 U
     Route: 048
     Dates: start: 20110801
  8. VOLTAREN [Concomitant]
     Indication: OSTEOARTHRITIS
     Route: 048
     Dates: start: 20080101
  9. CARDIZEM [Concomitant]
     Indication: ATRIAL FIBRILLATION
     Dosage: 120 MG
     Route: 048
     Dates: start: 20010101
  10. DIGITALIS TAB [Concomitant]
     Indication: CARDIAC DISORDER
     Route: 048
     Dates: start: 20020101

REACTIONS (2)
  - THROAT IRRITATION [None]
  - DYSGEUSIA [None]
